FAERS Safety Report 7677970-1 (Version None)
Quarter: 2011Q3

REPORT INFORMATION
  Report Type: 
  Country: None (occurrence: None)
  Receive Date: 20110811
  Receipt Date: 20110729
  Transmission Date: 20111222
  Serious: Yes (Congenital Anomaly)
  Sender: FDA-Public Use
  Company Number: US-GLAXOSMITHKLINE-A0874696A

PATIENT
  Sex: Male
  Weight: 3.1 kg

DRUGS (1)
  1. PAROXETINE HCL [Suspect]
     Indication: DEPRESSION
     Dosage: 40MG PER DAY
     Route: 064

REACTIONS (2)
  - TALIPES [None]
  - MATERNAL EXPOSURE DURING PREGNANCY [None]
